FAERS Safety Report 9041140 (Version 1)
Quarter: 2013Q1

REPORT INFORMATION
  Report Type: Spontaneous
  Country: US (occurrence: None)
  Receive Date: 20130124
  Receipt Date: 20130124
  Transmission Date: 20140127
  Serious: No
  Sender: FDA-Public Use
  Company Number: None

PATIENT
  Sex: Male
  Weight: 81.65 kg

DRUGS (1)
  1. MICARDIS [Suspect]
     Indication: HYPERTENSION
     Dosage: (1) ONCE A DAY  MOUTH?EVERY DAY
     Route: 048

REACTIONS (3)
  - Vomiting [None]
  - Diarrhoea [None]
  - Back pain [None]
